FAERS Safety Report 8462334 (Version 3)
Quarter: 2012Q4

REPORT INFORMATION
  Report Type: 
  Country: US (occurrence: US)
  Receive Date: 20120316
  Receipt Date: 20121010
  Transmission Date: 20130627
  Serious: Yes (Death, Other)
  Sender: FDA-Public Use
  Company Number: US-PFIZER INC-2011294613

PATIENT
  Age: 64 Year
  Sex: Male
  Weight: 72.56 kg

DRUGS (1)
  1. SUTENT [Suspect]
     Indication: RENAL CANCER
     Dosage: 50 mg, 1x/day, 4 weeks on/2 weeks off
     Dates: start: 20111121

REACTIONS (4)
  - Death [Fatal]
  - Liver function test abnormal [Recovered/Resolved]
  - Musculoskeletal pain [Unknown]
  - Enzyme abnormality [Recovered/Resolved]
